FAERS Safety Report 8276462-9 (Version None)
Quarter: 2012Q2

REPORT INFORMATION
  Report Type: 
  Country: None (occurrence: None)
  Receive Date: 20120412
  Receipt Date: 20120409
  Transmission Date: 20120825
  Serious: Yes (Death)
  Sender: FDA-Public Use
  Company Number: US-CELGENEUS-163-21880-12040885

PATIENT
  Sex: Male

DRUGS (13)
  1. REVLIMID [Suspect]
     Indication: MULTIPLE MYELOMA
     Dosage: 5 MILLIGRAM
     Route: 048
     Dates: start: 20080424, end: 20111101
  2. ASPIRIN [Concomitant]
     Dosage: 81 MILLIGRAM
  3. REVATIO [Concomitant]
     Dosage: 20 MILLIGRAM
     Route: 065
  4. AREDIA [Concomitant]
     Dosage: 30 MILLIGRAM
     Route: 065
  5. PRAVACHOL [Concomitant]
     Dosage: 10 MILLIGRAM
     Route: 065
  6. SEPTRA [Concomitant]
     Dosage: 400-80MG
     Route: 065
  7. SPIRIVA [Concomitant]
     Route: 065
  8. CYANOCOBALAM [Concomitant]
     Dosage: 1000 MICROGRAM
     Route: 065
  9. VELCADE [Concomitant]
     Dosage: 3.5 MILLIGRAM
     Route: 065
  10. DEXAMETHASONE [Concomitant]
     Dosage: 4 MILLIGRAM
     Route: 065
  11. ADVAIR DISKUS 100/50 [Concomitant]
     Dosage: 500/50
     Route: 065
  12. METOPROLOL TARTRATE [Concomitant]
     Dosage: 100 MILLIGRAM
     Route: 065
  13. NORVASC [Concomitant]
     Dosage: 5 MILLIGRAM
     Route: 065

REACTIONS (1)
  - DEATH [None]
